FAERS Safety Report 10095877 (Version 1)
Quarter: 2014Q2

REPORT INFORMATION
  Report Type: Spontaneous
  Country: US (occurrence: US)
  Receive Date: 20140422
  Receipt Date: 20140422
  Transmission Date: 20141212
  Serious: No
  Sender: FDA-Public Use
  Company Number: US-GILEAD-2013-0076890

PATIENT
  Sex: Female

DRUGS (2)
  1. LETAIRIS [Suspect]
     Indication: PRODUCT USED FOR UNKNOWN INDICATION
     Dosage: 10 MG, QD
  2. ADCIRCA [Concomitant]

REACTIONS (5)
  - Hypersomnia [Unknown]
  - Gait disturbance [Unknown]
  - Fluid retention [Unknown]
  - Headache [Unknown]
  - Dizziness [Unknown]
